FAERS Safety Report 16795370 (Version 2)
Quarter: 2019Q4

REPORT INFORMATION
  Report Type: Spontaneous
  Country: US (occurrence: US)
  Receive Date: 20190911
  Receipt Date: 20191111
  Transmission Date: 20200122
  Serious: Yes (Hospitalization, Other)
  Sender: FDA-Public Use
  Company Number: US-PFIZER INC-2019392841

PATIENT
  Age: 75 Year
  Sex: Female
  Weight: 86.17 kg

DRUGS (3)
  1. METHOTREXATE. [Concomitant]
     Active Substance: METHOTREXATE
     Indication: RHEUMATOID ARTHRITIS
     Dosage: 12.5 MG, WEEKLY, (2.5MG TABLETS, FIVE TABLETS BY MOUTH)
     Route: 048
  2. XELJANZ [Suspect]
     Active Substance: TOFACITINIB CITRATE
     Indication: RHEUMATOID ARTHRITIS
     Dosage: 11 MG, 1X/DAY
     Route: 048
     Dates: start: 201906, end: 20190804
  3. DICLOFENAC SODIUM [DICLOFENAC DIETHYLAMINE] [Concomitant]
     Indication: RHEUMATOID ARTHRITIS
     Dosage: 75 MG, 2X/DAY, (75MG, ONE TABLET BY MOUTH, TWICE A DAY WITH FOOD )
     Route: 048

REACTIONS (4)
  - Dyspnoea [Not Recovered/Not Resolved]
  - Acute kidney injury [Recovered/Resolved with Sequelae]
  - Lung disorder [Not Recovered/Not Resolved]
  - Malaise [Not Recovered/Not Resolved]

NARRATIVE: CASE EVENT DATE: 201908
